FAERS Safety Report 9880262 (Version 3)
Quarter: 2014Q1

REPORT INFORMATION
  Report Type: Spontaneous
  Country: JP (occurrence: JP)
  Receive Date: 20140207
  Receipt Date: 20140224
  Transmission Date: 20141002
  Serious: No
  Sender: FDA-Public Use
  Company Number: JP-BRISTOL-MYERS SQUIBB COMPANY-19068535

PATIENT
  Age: 36 Year
  Sex: Female

DRUGS (8)
  1. ABILIFY TABS [Suspect]
     Indication: SCHIZOPHRENIA
     Dosage: 11JA-21JA:3?22JA-14FB:6?15FE-11MA:9?12MA-9AP:15?10AP-31MY:12?1JN-13JN:18,14JN-2SE:24,FROM3SE:30
     Route: 048
     Dates: start: 20130111
  2. LEXAPRO [Suspect]
     Indication: DEPRESSION
     Dosage: TABS
     Route: 048
     Dates: start: 20121019
  3. SILECE [Suspect]
     Indication: INSOMNIA
     Dosage: TABS.
     Route: 048
     Dates: start: 20121019
  4. CONTOMIN [Suspect]
     Indication: INSOMNIA
     Dosage: TABS.
     Route: 048
     Dates: start: 20121019
  5. SEROQUEL [Suspect]
     Indication: INSOMNIA
     Route: 048
     Dates: start: 20121019
  6. CYMBALTA [Suspect]
     Indication: DEPRESSION
     Dosage: CAPSULE.
     Route: 048
     Dates: start: 20121102
  7. PYRETHIA [Concomitant]
     Dates: start: 20121019
  8. TASMOLIN [Concomitant]

REACTIONS (2)
  - Pregnancy [Recovered/Resolved]
  - Live birth [Unknown]
